FAERS Safety Report 25405366 (Version 1)
Quarter: 2025Q2

REPORT INFORMATION
  Report Type: Spontaneous
  Country: GR (occurrence: GR)
  Receive Date: 20250606
  Receipt Date: 20250606
  Transmission Date: 20250717
  Serious: Yes (Life-Threatening, Hospitalization, Other)
  Sender: Kenvue
  Company Number: GR-SA-2025SA149238

PATIENT

DRUGS (17)
  1. LOPERAMIDE HYDROCHLORIDE [Suspect]
     Active Substance: LOPERAMIDE HYDROCHLORIDE
     Indication: Prophylaxis against diarrhoea
     Route: 048
     Dates: start: 20240404, end: 20241022
  2. OXALIPLATIN [Suspect]
     Active Substance: OXALIPLATIN
     Indication: Colorectal cancer
     Route: 065
     Dates: start: 20240404
  3. TRASTUZUMAB [Suspect]
     Active Substance: TRASTUZUMAB
     Indication: Colorectal cancer
     Route: 065
     Dates: start: 20240404, end: 20240511
  4. LEUCOVORIN CALCIUM [Suspect]
     Active Substance: LEUCOVORIN CALCIUM
     Indication: Colorectal cancer
     Route: 042
     Dates: start: 20240404
  5. FLUOROURACIL [Suspect]
     Active Substance: FLUOROURACIL
     Indication: Colorectal cancer
     Route: 042
     Dates: start: 20240404, end: 20240718
  6. FLUOROURACIL [Suspect]
     Active Substance: FLUOROURACIL
     Route: 042
     Dates: start: 20240404, end: 20240718
  7. FLUOROURACIL [Suspect]
     Active Substance: FLUOROURACIL
     Route: 042
     Dates: start: 20240813
  8. FLUOROURACIL [Suspect]
     Active Substance: FLUOROURACIL
     Route: 042
     Dates: start: 20240813
  9. FLUOROURACIL [Suspect]
     Active Substance: FLUOROURACIL
     Route: 042
     Dates: start: 202408
  10. TUCATINIB [Suspect]
     Active Substance: TUCATINIB
     Indication: Colorectal cancer
     Dosage: 150 MG, QID (6 HRS)
     Route: 048
     Dates: start: 20240404, end: 20240511
  11. LOPRESSOR [Concomitant]
     Active Substance: METOPROLOL TARTRATE
     Indication: Sinus tachycardia
     Route: 048
  12. Dexaton [Concomitant]
     Indication: Premedication
     Route: 065
     Dates: start: 20240404
  13. TAGAMET [Concomitant]
     Active Substance: CIMETIDINE
     Indication: Premedication
     Route: 065
     Dates: start: 20240404
  14. DIMETHINDENE MALEATE [Concomitant]
     Active Substance: DIMETHINDENE MALEATE
     Indication: Premedication
     Route: 065
     Dates: start: 20240404
  15. Onda [Concomitant]
     Indication: Premedication
     Route: 042
     Dates: start: 20240404
  16. SOLU-MEDROL [Concomitant]
     Active Substance: METHYLPREDNISOLONE SODIUM SUCCINATE
     Indication: Premedication
     Route: 065
     Dates: start: 20240404
  17. INNOHEP [Concomitant]
     Active Substance: TINZAPARIN SODIUM
     Indication: Prophylaxis
     Route: 065
     Dates: start: 20240903

REACTIONS (9)
  - Warm autoimmune haemolytic anaemia [Recovered/Resolved with Sequelae]
  - Anaemia [Recovered/Resolved]
  - Infusion related reaction [Recovered/Resolved with Sequelae]
  - Liver injury [Recovered/Resolved]
  - Febrile neutropenia [Recovered/Resolved]
  - Pneumonia bacterial [Recovered/Resolved]
  - Bronchospasm [Recovered/Resolved]
  - Pulmonary embolism [Recovered/Resolved with Sequelae]
  - COVID-19 [Recovered/Resolved]

NARRATIVE: CASE EVENT DATE: 20240903
